FAERS Safety Report 11837532 (Version 1)
Quarter: 2015Q4

REPORT INFORMATION
  Report Type: Report from Study
  Country: US (occurrence: US)
  Receive Date: 20151215
  Receipt Date: 20151215
  Transmission Date: 20160305
  Serious: Yes (Other)
  Sender: FDA-Public Use
  Company Number: US-ABBVIE-15K-163-1516294-00

PATIENT
  Sex: Female

DRUGS (2)
  1. HUMIRA [Suspect]
     Active Substance: ADALIMUMAB
     Indication: PSORIASIS
     Route: 058
     Dates: start: 2013
  2. CARTILAGE [Concomitant]
     Indication: CHONDROPATHY
     Dates: start: 20151203

REACTIONS (6)
  - Nerve compression [Not Recovered/Not Resolved]
  - Trigger finger [Not Recovered/Not Resolved]
  - Carpal tunnel syndrome [Not Recovered/Not Resolved]
  - Joint effusion [Unknown]
  - Trigger finger [Unknown]
  - Fall [Unknown]

NARRATIVE: CASE EVENT DATE: 2015
